FAERS Safety Report 9129799 (Version 1)
Quarter: 2013Q1

REPORT INFORMATION
  Report Type: Spontaneous
  Country: PT (occurrence: PT)
  Receive Date: 20130125
  Receipt Date: 20130125
  Transmission Date: 20140127
  Serious: Yes (Death)
  Sender: FDA-Public Use
  Company Number: PT-BRISTOL-MYERS SQUIBB COMPANY-17293531

PATIENT
  Age: 83 Year
  Sex: Male

DRUGS (1)
  1. ENTECAVIR [Suspect]

REACTIONS (1)
  - Non-Hodgkin^s lymphoma [Fatal]
